FAERS Safety Report 8080499-2 (Version None)
Quarter: 2012Q1

REPORT INFORMATION
  Report Type: 
  Country: None (occurrence: None)
  Receive Date: 20120130
  Receipt Date: 20120118
  Transmission Date: 20120608
  Serious: No
  Sender: FDA-Public Use
  Company Number: US-PFIZER INC-2012014902

PATIENT
  Sex: Male
  Weight: 72.6 kg

DRUGS (5)
  1. LEVOXYL [Suspect]
     Dosage: 125 UG, 1X/DAY
     Route: 048
     Dates: start: 20070101, end: 20110301
  2. LEVOXYL [Suspect]
     Indication: HYPOTHYROIDISM
     Dosage: 100 UG, 1X/DAY
     Route: 048
     Dates: end: 20070101
  3. TAMSULOSIN [Concomitant]
     Dosage: UNK
  4. LEVOXYL [Suspect]
     Dosage: 125 UG, 1X/DAY
     Dates: start: 20110901
  5. LIPITOR [Concomitant]
     Indication: BLOOD CHOLESTEROL INCREASED
     Dosage: UNK
     Dates: start: 20060101

REACTIONS (3)
  - DRUG INEFFECTIVE [None]
  - INAPPROPRIATE SCHEDULE OF DRUG ADMINISTRATION [None]
  - BODY HEIGHT DECREASED [None]
